FAERS Safety Report 15930635 (Version 1)
Quarter: 2019Q1

REPORT INFORMATION
  Report Type: Spontaneous
  Country: GB (occurrence: GB)
  Receive Date: 20190207
  Receipt Date: 20190207
  Transmission Date: 20190417
  Serious: Yes (Life-Threatening)
  Sender: FDA-Public Use
  Company Number: GB-ROCHE-2260049

PATIENT
  Age: 64 Year
  Sex: Female

DRUGS (7)
  1. RITUXIMAB. [Suspect]
     Active Substance: RITUXIMAB
     Indication: RHEUMATOID ARTHRITIS
     Dosage: 1G WEEK 0 AND WEEK 2 (HAD 4 CYCLES IN TOTAL - 2007, 2009, 2011, 2012).
     Route: 042
     Dates: start: 2009
  2. AZATHIOPRINE. [Concomitant]
     Active Substance: AZATHIOPRINE
  3. RITUXIMAB. [Suspect]
     Active Substance: RITUXIMAB
     Indication: RHEUMATOID ARTHRITIS
     Dosage: 1G WEEK 0 AND WEEK 2 (HAD 4 CYCLES IN TOTAL - 2007, 2009, 2011, 2012).
     Route: 042
     Dates: start: 2011
  4. RITUXIMAB. [Suspect]
     Active Substance: RITUXIMAB
     Indication: RHEUMATOID ARTHRITIS
     Dosage: 1G WEEK 0 AND WEEK 2 (HAD 4 CYCLES IN TOTAL - 2007, 2009, 2011, 2012).
     Route: 042
     Dates: start: 201209
  5. COCODAMOL [Concomitant]
     Active Substance: ACETAMINOPHEN\CODEINE PHOSPHATE
     Route: 065
  6. RITUXIMAB. [Suspect]
     Active Substance: RITUXIMAB
     Indication: RHEUMATOID ARTHRITIS
     Dosage: 1G WEEK 0 AND WEEK 2 (HAD 4 CYCLES IN TOTAL - 2007, 2009, 2011, 2012).
     Route: 042
     Dates: start: 200711
  7. AMITRIPTYLINE [Concomitant]
     Active Substance: AMITRIPTYLINE

REACTIONS (4)
  - Haematochezia [Unknown]
  - Gastrointestinal carcinoma [Recovering/Resolving]
  - Weight decreased [Unknown]
  - Abdominal pain upper [Unknown]

NARRATIVE: CASE EVENT DATE: 201812
